FAERS Safety Report 10669688 (Version 3)
Quarter: 2014Q4

REPORT INFORMATION
  Report Type: Report from Study
  Country: BR (occurrence: BR)
  Receive Date: 20141222
  Receipt Date: 20141230
  Transmission Date: 20150529
  Serious: Yes (Hospitalization, Other)
  Sender: FDA-Public Use
  Company Number: BR-SA-2014SA107485

PATIENT
  Age: 58 Year
  Sex: Female
  Weight: 76 kg

DRUGS (20)
  1. APIDRA SOLOSTAR [Suspect]
     Active Substance: INSULIN GLULISINE
     Indication: DIABETES MELLITUS
     Route: 058
     Dates: start: 2013, end: 201408
  2. LANTUS SOLOSTAR [Suspect]
     Active Substance: INSULIN GLARGINE
     Indication: DIABETES MELLITUS
     Route: 065
     Dates: start: 20141219
  3. LANTUS SOLOSTAR [Suspect]
     Active Substance: INSULIN GLARGINE
     Indication: DIABETES MELLITUS
     Route: 065
  4. ASPIRIN. [Concomitant]
     Active Substance: ASPIRIN
     Indication: CARDIAC DISORDER
     Route: 048
  5. OMEPRAZOLE. [Concomitant]
     Active Substance: OMEPRAZOLE
     Indication: VOMITING
     Route: 048
     Dates: start: 2011
  6. SELOKEN [Concomitant]
     Active Substance: METOPROLOL
     Indication: BLOOD PRESSURE
     Dosage: START: 1 YEAR AND LITTLE
  7. SOLOSTAR [Concomitant]
     Active Substance: DEVICE
     Dates: start: 201402
  8. SOLOSTAR [Concomitant]
     Active Substance: DEVICE
     Dates: start: 2012, end: 201408
  9. PARACETAMOL/PHENYLEPHRINE HYDROCHLORIDE [Concomitant]
     Indication: BLOOD PRESSURE
     Route: 048
  10. NPH INSULIN [Concomitant]
     Active Substance: INSULIN BEEF
  11. APIDRA SOLOSTAR [Suspect]
     Active Substance: INSULIN GLULISINE
     Indication: DIABETES MELLITUS
     Dosage: DOSE- 4 IU^S AT THE TIME OF COFFEE, 4 IU^S AT LUNCH AND 2 IU^S AT DINNER
     Route: 058
     Dates: start: 2012
  12. METOPROLOL TARTRATE. [Concomitant]
     Active Substance: METOPROLOL TARTRATE
     Indication: BLOOD PRESSURE
     Route: 048
  13. SIMVASTATIN. [Concomitant]
     Active Substance: SIMVASTATIN
     Indication: BLOOD CHOLESTEROL
     Route: 048
  14. METFORMIN [Concomitant]
     Active Substance: METFORMIN HYDROCHLORIDE
     Indication: DIABETES MELLITUS
     Route: 048
  15. ATENSINA [Concomitant]
     Active Substance: CLONIDINE
     Indication: BLOOD PRESSURE
  16. BENICAR [Concomitant]
     Active Substance: OLMESARTAN MEDOXOMIL
     Indication: BLOOD PRESSURE
     Route: 048
     Dates: start: 2012
  17. APIDRA SOLOSTAR [Suspect]
     Active Substance: INSULIN GLULISINE
     Indication: DIABETES MELLITUS
     Dosage: DOSE- 4 IU^S AT THE TIME OF COFFEE, 4 IU^S AT LUNCH AND 2 IU^S AT DINNER
     Route: 058
  18. LANTUS SOLOSTAR [Suspect]
     Active Substance: INSULIN GLARGINE
     Indication: DIABETES MELLITUS
     Route: 065
     Dates: start: 2012
  19. LANTUS SOLOSTAR [Suspect]
     Active Substance: INSULIN GLARGINE
     Indication: DIABETES MELLITUS
     Route: 065
     Dates: start: 2013, end: 201408
  20. ADAPIN [Concomitant]
     Indication: BLOOD PRESSURE
     Route: 048

REACTIONS (24)
  - Infarction [Unknown]
  - Muscle spasms [Not Recovered/Not Resolved]
  - Heart rate increased [Unknown]
  - Feeling abnormal [Recovered/Resolved]
  - Pain [Not Recovered/Not Resolved]
  - Pain in extremity [Unknown]
  - Cough [Recovered/Resolved]
  - Tremor [Not Recovered/Not Resolved]
  - Hypoglycaemia [Unknown]
  - Palpitations [Not Recovered/Not Resolved]
  - Blood glucose increased [Not Recovered/Not Resolved]
  - Malaise [Unknown]
  - Sensory disturbance [Not Recovered/Not Resolved]
  - Rheumatic disorder [Unknown]
  - Asthenia [Unknown]
  - Drug dose omission [Unknown]
  - Headache [Not Recovered/Not Resolved]
  - Pain in extremity [Not Recovered/Not Resolved]
  - Arthritis [Unknown]
  - Emotional distress [Recovered/Resolved]
  - Hospitalisation [Unknown]
  - Vomiting [Unknown]
  - Insomnia [Unknown]
  - Dysphonia [Unknown]

NARRATIVE: CASE EVENT DATE: 201311
